FAERS Safety Report 4837771-6 (Version None)
Quarter: 2005Q4

REPORT INFORMATION
  Report Type: 
  Country: None (occurrence: None)
  Receive Date: 20051128
  Receipt Date: 20051004
  Transmission Date: 20060501
  Serious: Yes (Hospitalization, Disabling, Other)
  Sender: FDA-Public Use
  Company Number: US-MERCK-0510USA03076

PATIENT
  Age: 52 Year
  Sex: Female
  Weight: 80 kg

DRUGS (12)
  1. VIOXX [Suspect]
     Indication: FALL
     Route: 048
     Dates: start: 20010223, end: 20010301
  2. VIOXX [Suspect]
     Route: 048
     Dates: start: 20010101
  3. VIOXX [Suspect]
     Route: 048
     Dates: start: 20010101, end: 20010101
  4. VIOXX [Suspect]
     Indication: ARTHRITIS
     Route: 048
     Dates: start: 20010223, end: 20010301
  5. VIOXX [Suspect]
     Route: 048
     Dates: start: 20010101
  6. VIOXX [Suspect]
     Route: 048
     Dates: start: 20010101, end: 20010101
  7. SKELAXIN [Concomitant]
     Route: 048
  8. PREMARIN [Concomitant]
     Route: 065
  9. VITAMIN E [Concomitant]
     Route: 065
  10. LORTAB [Concomitant]
     Indication: BACK PAIN
     Route: 065
  11. [THERAPY UNSPECIFIED] [Concomitant]
     Route: 065
  12. TYLENOL W/ CODEINE NO. 3 [Concomitant]
     Route: 065

REACTIONS (36)
  - ACUTE MYOCARDIAL INFARCTION [None]
  - ANGINA PECTORIS [None]
  - ARTERIOSCLEROSIS CORONARY ARTERY [None]
  - ASTHENIA [None]
  - BACK INJURY [None]
  - BACK PAIN [None]
  - BRADYCARDIA [None]
  - BRONCHITIS [None]
  - CHEST PAIN [None]
  - CHRONIC OBSTRUCTIVE PULMONARY DISEASE [None]
  - COSTOCHONDRITIS [None]
  - COUGH [None]
  - DEPRESSION [None]
  - DIVERTICULUM [None]
  - ECZEMA [None]
  - ESSENTIAL HYPERTENSION [None]
  - HAEMORRHOIDS [None]
  - HYPERCHOLESTEROLAEMIA [None]
  - HYPERLIPIDAEMIA [None]
  - INTERMITTENT CLAUDICATION [None]
  - INTERVERTEBRAL DISC PROTRUSION [None]
  - JOINT SPRAIN [None]
  - LOWER GASTROINTESTINAL HAEMORRHAGE [None]
  - MELANOSIS COLI [None]
  - MITRAL VALVE INCOMPETENCE [None]
  - MUSCLE SPASMS [None]
  - NAUSEA [None]
  - NECK PAIN [None]
  - OBESITY [None]
  - PARAESTHESIA [None]
  - PERIPHERAL VASCULAR DISORDER [None]
  - PHARYNGITIS [None]
  - POSTNASAL DRIP [None]
  - SLEEP APNOEA SYNDROME [None]
  - STRESS INCONTINENCE [None]
  - UPPER RESPIRATORY TRACT INFECTION [None]
